FAERS Safety Report 10781530 (Version 11)
Quarter: 2016Q3

REPORT INFORMATION
  Report Type: Spontaneous
  Country: US (occurrence: US)
  Receive Date: 20150210
  Receipt Date: 20160906
  Transmission Date: 20161109
  Serious: Yes (Other)
  Sender: FDA-Public Use
  Company Number: US-GLAXOSMITHKLINE-A1070012A

PATIENT
  Age: 58 Year
  Sex: Female

DRUGS (11)
  1. FLOLAN [Suspect]
     Active Substance: EPOPROSTENOL SODIUM
     Indication: COR PULMONALE CHRONIC
     Dosage: 29.3 NG/KG/MIN, 1.5 MG VIAL STRENGTH, 30,000 NG/ML CONCENTRATION
     Route: 042
     Dates: start: 20140110
  2. FLOLAN [Suspect]
     Active Substance: EPOPROSTENOL SODIUM
     Dosage: 25.5 NG/KG/MIN
     Route: 042
  3. FLOLAN [Suspect]
     Active Substance: EPOPROSTENOL SODIUM
     Dosage: 23.53 NG/KG/MIN, CO
     Route: 042
  4. LIDOCAINE. [Concomitant]
     Active Substance: LIDOCAINE
  5. FLOLAN [Suspect]
     Active Substance: EPOPROSTENOL SODIUM
     Dosage: UNK, CO
     Dates: start: 20140110
  6. FLOLAN [Suspect]
     Active Substance: EPOPROSTENOL SODIUM
     Indication: PULMONARY HYPERTENSION
  7. FLOLAN [Suspect]
     Active Substance: EPOPROSTENOL SODIUM
     Dosage: 27.78 NG/KG/MIN, (CONCENTRATION 30,000 NG/ML, PUMP RATE 72 ML/DAY, VIAL STRENGTH 1.5 MG), CO
  8. FLOLAN [Suspect]
     Active Substance: EPOPROSTENOL SODIUM
     Dosage: 26.2 DF, CO
  9. FLOLAN [Suspect]
     Active Substance: EPOPROSTENOL SODIUM
     Dosage: 25.5 NG/KG/MIN
     Route: 042
     Dates: start: 20140110
  10. FLOLAN [Suspect]
     Active Substance: EPOPROSTENOL SODIUM
     Indication: PULMONARY HYPERTENSION
     Dosage: 29.32 NG/KG/MIN (CONCENTRATION 30,000 NG/ML, PUMP RATE 76 ML/DAY, VIAL STRENGTH 1.5 MG), CO
     Route: 042
  11. FLOLAN [Suspect]
     Active Substance: EPOPROSTENOL SODIUM
     Dosage: UNK, CO
     Dates: start: 20140110

REACTIONS (21)
  - Rhinorrhoea [Unknown]
  - Catheter site inflammation [Unknown]
  - Throat irritation [Unknown]
  - Nasopharyngitis [Unknown]
  - Nasopharyngitis [Not Recovered/Not Resolved]
  - Paranasal sinus hypersecretion [Unknown]
  - Cough [Unknown]
  - Respiratory tract congestion [Unknown]
  - Pyrexia [Unknown]
  - Catheter site haemorrhage [Unknown]
  - Night sweats [Unknown]
  - Viral infection [Unknown]
  - Malabsorption [Unknown]
  - Epistaxis [Unknown]
  - Central venous catheterisation [Unknown]
  - Diarrhoea [Unknown]
  - Pain in jaw [Unknown]
  - Sinusitis [Unknown]
  - Tooth fracture [Unknown]
  - Flushing [Unknown]
  - Device breakage [Unknown]

NARRATIVE: CASE EVENT DATE: 20160121
